FAERS Safety Report 5571828-X (Version None)
Quarter: 2007Q4

REPORT INFORMATION
  Report Type: 
  Country: None (occurrence: None)
  Receive Date: 20071221
  Receipt Date: 20071030
  Transmission Date: 20080405
  Serious: No
  Sender: FDA-Public Use
  Company Number: US-BAYER-US-2007-041284

PATIENT
  Age: 15 Year
  Sex: Female
  Weight: 59 kg

DRUGS (4)
  1. YAZ [Suspect]
     Indication: CONTRACEPTION
     Route: 048
     Dates: start: 20071028
  2. PREVACID [Concomitant]
  3. SINGULAIR [Concomitant]
  4. VITAMIN B6 [Concomitant]

REACTIONS (2)
  - GENITAL PAIN [None]
  - VULVAL DISORDER [None]
